FAERS Safety Report 7634561-6 (Version None)
Quarter: 2011Q3

REPORT INFORMATION
  Report Type: 
  Country: None (occurrence: None)
  Receive Date: 20110725
  Receipt Date: 20110714
  Transmission Date: 20111222
  Serious: Yes (Hospitalization, Other)
  Sender: FDA-Public Use
  Company Number: US-ASTRAZENECA-2011SE38508

PATIENT
  Sex: Male

DRUGS (1)
  1. NEXIUM [Suspect]
     Route: 048

REACTIONS (5)
  - OESOPHAGEAL OPERATION [None]
  - GASTRIC OPERATION [None]
  - MALIGNANT TUMOUR EXCISION [None]
  - GASTRECTOMY [None]
  - NEOPLASM MALIGNANT [None]
